FAERS Safety Report 18678895 (Version 1)
Quarter: 2020Q4

REPORT INFORMATION
  Report Type: Spontaneous
  Country: FR (occurrence: FR)
  Receive Date: 20201230
  Receipt Date: 20201230
  Transmission Date: 20210114
  Serious: Yes (Hospitalization, Other)
  Sender: FDA-Public Use
  Company Number: FR-SA-2020SA373306

PATIENT

DRUGS (7)
  1. MEROPENEM. [Suspect]
     Active Substance: MEROPENEM
     Indication: MEDICAL DEVICE SITE ABSCESS
     Dosage: 3 G, QD
     Route: 042
     Dates: start: 20201207, end: 20201215
  2. AMIODARONE HYDROCHLORIDE. [Suspect]
     Active Substance: AMIODARONE HYDROCHLORIDE
     Indication: ATRIAL FIBRILLATION
     Dosage: 200 MG, QD
     Route: 048
  3. KARDEGIC [Suspect]
     Active Substance: ASPIRIN DL-LYSINE
     Indication: PLATELET AGGREGATION INHIBITION
     Dosage: 75 MG, QD
     Dates: start: 20201114
  4. ATORVASTATIN [Suspect]
     Active Substance: ATORVASTATIN
     Indication: HYPERCHOLESTEROLAEMIA
     Dosage: 40 MG, QD
     Route: 048
     Dates: start: 20201115
  5. FUROSEMIDE. [Suspect]
     Active Substance: FUROSEMIDE
     Indication: POLYURIA
     Dosage: 30 MG, QD
     Route: 048
     Dates: start: 20201210
  6. DAPTOMYCIN MEDAC [Suspect]
     Active Substance: DAPTOMYCIN
     Indication: MEDICAL DEVICE SITE ABSCESS
     Dosage: 700 MG, QD
     Dates: start: 20201126
  7. RIFADINE [Suspect]
     Active Substance: RIFAMPIN
     Indication: MEDICAL DEVICE SITE ABSCESS
     Dosage: 600 MG, QD
     Route: 042
     Dates: start: 20201126

REACTIONS (1)
  - Encephalopathy [Not Recovered/Not Resolved]

NARRATIVE: CASE EVENT DATE: 20201213
